FAERS Safety Report 14217355 (Version 1)
Quarter: 2017Q4

REPORT INFORMATION
  Report Type: Spontaneous
  Country: US (occurrence: US)
  Receive Date: 20171123
  Receipt Date: 20171123
  Transmission Date: 20180321
  Serious: No
  Sender: FDA-Public Use
  Company Number: US-ELI_LILLY_AND_COMPANY-US201711005939

PATIENT
  Sex: Female

DRUGS (1)
  1. HUMALOG [Suspect]
     Active Substance: INSULIN LISPRO
     Indication: TYPE 1 DIABETES MELLITUS
     Dosage: 24 U, PRN
     Route: 058
     Dates: start: 196211

REACTIONS (4)
  - Visual impairment [Not Recovered/Not Resolved]
  - Blood glucose abnormal [Recovered/Resolved]
  - Incorrect dose administered [Recovered/Resolved]
  - Hypertension [Unknown]
